FAERS Safety Report 9277361 (Version 1)
Quarter: 2013Q2

REPORT INFORMATION
  Report Type: Spontaneous
  Country: US (occurrence: None)
  Receive Date: 20130503
  Receipt Date: 20130503
  Transmission Date: 20140414
  Serious: Yes (Disabling, Other)
  Sender: FDA-Public Use
  Company Number: None

PATIENT
  Age: 77 Year
  Sex: Female
  Weight: 70.31 kg

DRUGS (1)
  1. PROLIA [Suspect]
     Indication: OSTEOPOROSIS
     Dosage: Q 6 M
     Route: 058
     Dates: start: 20120329, end: 20120928

REACTIONS (6)
  - Pain of skin [None]
  - Bone pain [None]
  - Arthralgia [None]
  - Pain in extremity [None]
  - Groin pain [None]
  - Pain in extremity [None]
